FAERS Safety Report 8125294-0 (Version None)
Quarter: 2012Q1

REPORT INFORMATION
  Report Type: 
  Country: None (occurrence: None)
  Receive Date: 20120209
  Receipt Date: 20120202
  Transmission Date: 20120608
  Serious: Yes (Life-Threatening, Hospitalization)
  Sender: FDA-Public Use
  Company Number: US-BAYER-2011-047034

PATIENT
  Age: 38 Year
  Sex: Female
  Weight: 70.295 kg

DRUGS (7)
  1. YASMIN [Suspect]
     Indication: MENORRHAGIA
     Dosage: UNK
     Route: 048
     Dates: start: 20080101, end: 20090601
  2. MODAFINIL [Concomitant]
     Dosage: 200 MG, PRN
     Route: 048
  3. FLONASE [Concomitant]
     Dosage: 2 PUFF(S), UNK
     Route: 045
  4. AMLODIPINE [Concomitant]
     Dosage: 5 MG, QD
     Route: 048
  5. GABAPENTIN [Concomitant]
     Dosage: 80 MG, UNK
  6. FLUCONAZOLE [Concomitant]
     Dosage: 150 MG, UNK
     Route: 048
  7. MORPHINE SULFATE [Concomitant]
     Indication: PAIN
     Dosage: 60 MG, BID

REACTIONS (7)
  - ANXIETY [None]
  - PULMONARY INFARCTION [None]
  - PULMONARY EMBOLISM [None]
  - INJURY [None]
  - PAIN [None]
  - THROMBOSIS [None]
  - ANHEDONIA [None]
